FAERS Safety Report 13987641 (Version 1)
Quarter: 2017Q3

REPORT INFORMATION
  Report Type: Spontaneous
  Country: FR (occurrence: FR)
  Receive Date: 20170919
  Receipt Date: 20170919
  Transmission Date: 20171128
  Serious: Yes (Other)
  Sender: FDA-Public Use
  Company Number: FR-MERCK KGAA-2026820

PATIENT
  Age: 55 Year

DRUGS (1)
  1. NOVOTHYROX [Suspect]
     Active Substance: LEVOTHYROXINE SODIUM
     Indication: POST PROCEDURAL HYPOTHYROIDISM

REACTIONS (6)
  - Headache [Unknown]
  - Fatigue [Unknown]
  - Hyperthyroidism [Not Recovered/Not Resolved]
  - Memory impairment [Unknown]
  - Muscle spasms [Unknown]
  - Urticaria [Unknown]
